FAERS Safety Report 9136972 (Version 2)
Quarter: 2013Q2

REPORT INFORMATION
  Report Type: Spontaneous
  Country: US (occurrence: US)
  Receive Date: 20130304
  Receipt Date: 20130424
  Transmission Date: 20140414
  Serious: No
  Sender: FDA-Public Use
  Company Number: US-B.I. PHARMACEUTICALS,INC./RIDGEFIELD-2013-BI-05172BP

PATIENT
  Age: 76 Year
  Sex: Female

DRUGS (11)
  1. SPIRIVA [Suspect]
     Indication: CHRONIC OBSTRUCTIVE PULMONARY DISEASE
     Dosage: 18 MCG
     Route: 055
     Dates: start: 20130208
  2. BENICAR [Concomitant]
     Indication: HYPERTENSION
     Route: 048
  3. TERAZOSIN [Concomitant]
     Route: 048
  4. VITAMIN C [Concomitant]
     Route: 048
  5. HYDROCHLOROTHIAZIDE [Concomitant]
  6. COUMADIN [Concomitant]
     Route: 048
  7. LASIX [Concomitant]
     Route: 048
  8. TOPROL [Concomitant]
     Indication: HYPERTENSION
     Route: 048
  9. CITRACAL [Concomitant]
     Route: 048
  10. FLONASE [Concomitant]
     Route: 045
  11. KLOR CON [Concomitant]
     Route: 048

REACTIONS (4)
  - Vision blurred [Not Recovered/Not Resolved]
  - Product quality issue [Recovered/Resolved]
  - Product quality issue [Recovered/Resolved]
  - Dry mouth [Not Recovered/Not Resolved]
